FAERS Safety Report 6749552-7 (Version None)
Quarter: 2010Q2

REPORT INFORMATION
  Report Type: 
  Country: None (occurrence: None)
  Receive Date: 20100601
  Receipt Date: 20100527
  Transmission Date: 20101027
  Serious: Yes (Death, Life-Threatening)
  Sender: FDA-Public Use
  Company Number: JP-BAYER-200911350BYL

PATIENT
  Age: 83 Year
  Sex: Female
  Weight: 49 kg

DRUGS (8)
  1. NEXAVAR [Suspect]
     Indication: RENAL CELL CARCINOMA
     Dosage: UNIT DOSE: 200 MG
     Route: 048
     Dates: start: 20090406, end: 20090417
  2. CANDESARTAN CILEXETIL [Concomitant]
     Dosage: UNIT DOSE: 8 MG
     Route: 048
     Dates: start: 20090405, end: 20090503
  3. AMLODIPINE [Concomitant]
     Dosage: UNIT DOSE: 5 MG
     Route: 048
     Dates: start: 20090405, end: 20090503
  4. PURSENNID [Concomitant]
     Indication: PROPHYLAXIS
     Dosage: UNIT DOSE: 12 MG
     Route: 048
     Dates: start: 20090413, end: 20090417
  5. LENDORMIN D [Concomitant]
     Indication: PROPHYLAXIS
     Dosage: UNIT DOSE: 0.25 MG
     Route: 048
     Dates: start: 20090418, end: 20090418
  6. LENDORMIN D [Concomitant]
     Dosage: UNIT DOSE: 0.25 MG
     Route: 048
     Dates: start: 20090502, end: 20090502
  7. LENDORMIN D [Concomitant]
     Dosage: UNIT DOSE: 0.25 MG
     Route: 048
     Dates: start: 20090425, end: 20090429
  8. KERATINAMIN [Concomitant]
     Indication: PROPHYLAXIS
     Route: 062
     Dates: start: 20090406, end: 20090503

REACTIONS (6)
  - BACK PAIN [None]
  - ERYTHEMA [None]
  - NEUTROPENIA [None]
  - PLEURAL EFFUSION [None]
  - RASH [None]
  - RENAL CELL CARCINOMA STAGE III [None]
